FAERS Safety Report 16544679 (Version 1)
Quarter: 2019Q3

REPORT INFORMATION
  Report Type: Spontaneous
  Country: US (occurrence: US)
  Receive Date: 20190708
  Receipt Date: 20190708
  Transmission Date: 20191004
  Serious: No
  Sender: FDA-Public Use
  Company Number: None

PATIENT
  Age: 28 Year
  Sex: Female

DRUGS (1)
  1. REGLAN [Suspect]
     Active Substance: METOCLOPRAMIDE HYDROCHLORIDE
     Indication: MIGRAINE
     Route: 042
     Dates: start: 20161107, end: 20161107

REACTIONS (5)
  - Anxiety [None]
  - Anger [None]
  - Exposure during pregnancy [None]
  - Delusion [None]
  - Insomnia [None]

NARRATIVE: CASE EVENT DATE: 20161107
